FAERS Safety Report 19400835 (Version 5)
Quarter: 2022Q4

REPORT INFORMATION
  Report Type: Report from Study
  Country: US (occurrence: US)
  Receive Date: 20210610
  Receipt Date: 20221109
  Transmission Date: 20230113
  Serious: Yes (Other)
  Sender: FDA-Public Use
  Company Number: US-SA-2019SA052490

PATIENT
  Age: 46 Year
  Sex: Male

DRUGS (1)
  1. VANDETANIB [Suspect]
     Active Substance: VANDETANIB
     Indication: Thyroid cancer
     Dosage: 300 MG, QD
     Route: 048
     Dates: start: 20190125

REACTIONS (18)
  - Cellulitis [Unknown]
  - Pigmentation disorder [Unknown]
  - Anxiety [Unknown]
  - Feeling jittery [Unknown]
  - Eczema [Unknown]
  - Sensitive skin [Unknown]
  - Chest wall mass [Unknown]
  - Scar [Unknown]
  - Limb injury [Unknown]
  - Arthralgia [Recovering/Resolving]
  - Blood blister [Unknown]
  - Musculoskeletal stiffness [Recovering/Resolving]
  - Diarrhoea [Unknown]
  - Acne [Recovering/Resolving]
  - Rash [Unknown]
  - Photosensitivity reaction [Unknown]
  - Skin discolouration [Unknown]
  - Extra dose administered [Unknown]
